FAERS Safety Report 13179547 (Version 2)
Quarter: 2017Q1

REPORT INFORMATION
  Report Type: Spontaneous
  Country: JP (occurrence: JP)
  Receive Date: 20170202
  Receipt Date: 20170210
  Transmission Date: 20170428
  Serious: Yes (Other)
  Sender: FDA-Public Use
  Company Number: JP-PFIZER INC-2017041059

PATIENT
  Age: 47 Year
  Sex: Male

DRUGS (1)
  1. ZITHROMAC SR 2G [Suspect]
     Active Substance: AZITHROMYCIN MONOHYDRATE
     Dosage: 2 G, SINGLE
     Route: 048

REACTIONS (3)
  - Syncope [Unknown]
  - Fall [Unknown]
  - Fracture [Unknown]
